FAERS Safety Report 4644204-1 (Version None)
Quarter: 2005Q2

REPORT INFORMATION
  Report Type: 
  Country: None (occurrence: None)
  Receive Date: 20050331
  Receipt Date: 20050107
  Transmission Date: 20051028
  Serious: No
  Sender: FDA-Public Use
  Company Number: 05P-163-0285718-00

PATIENT
  Age: 52 Year
  Sex: Female
  Weight: 102 kg

DRUGS (5)
  1. HUMIRA [Suspect]
     Indication: RHEUMATOID ARTHRITIS
     Dosage: 40 MG, 1 IN 2 WK, SUBCUTANEOUS
     Route: 058
     Dates: start: 20041224
  2. NAPROXEN [Concomitant]
  3. PARACETAMOL [Concomitant]
  4. COUMADIN [Concomitant]
  5. METOPROLOL SUCCINATE [Concomitant]

REACTIONS (5)
  - COUGH [None]
  - INJECTION SITE PAIN [None]
  - PROTHROMBIN TIME SHORTENED [None]
  - PRURITUS [None]
  - RASH [None]
